FAERS Safety Report 6482778-9 (Version None)
Quarter: 2009Q4

REPORT INFORMATION
  Report Type: 
  Country: None (occurrence: None)
  Receive Date: 20091209
  Receipt Date: 20091026
  Transmission Date: 20100525
  Serious: No
  Sender: FDA-Public Use
  Company Number: US-AMGEN-KDL370992

PATIENT
  Sex: Female

DRUGS (7)
  1. ENBREL [Suspect]
     Indication: RHEUMATOID ARTHRITIS
  2. METHOTREXATE [Concomitant]
  3. CELEBREX [Concomitant]
  4. FOLIC ACID [Concomitant]
  5. ALLEGRA [Concomitant]
  6. FOSAMAX [Concomitant]
  7. INFLUENZA VACCINE [Concomitant]

REACTIONS (2)
  - JOINT STIFFNESS [None]
  - MALAISE [None]
